FAERS Safety Report 18562460 (Version 3)
Quarter: 2020Q4

REPORT INFORMATION
  Report Type: Report from Study
  Country: None (occurrence: ES)
  Receive Date: 20201201
  Receipt Date: 20201231
  Transmission Date: 20210114
  Serious: Yes (Hospitalization)
  Sender: FDA-Public Use
  Company Number: ES-ABBVIE-20K-144-3667232-00

PATIENT
  Age: 85 Year
  Sex: Female
  Weight: 50 kg

DRUGS (2)
  1. DUODOPA [Suspect]
     Active Substance: CARBIDOPA\LEVODOPA
     Indication: PARKINSON^S DISEASE
     Route: 050
     Dates: start: 20180207
  2. DUODOPA [Suspect]
     Active Substance: CARBIDOPA\LEVODOPA

REACTIONS (7)
  - Disorientation [Not Recovered/Not Resolved]
  - Hip fracture [Recovered/Resolved]
  - Fall [Unknown]
  - Mental impairment [Recovering/Resolving]
  - Loss of personal independence in daily activities [Unknown]
  - Confusional state [Recovering/Resolving]
  - Granuloma [Unknown]

NARRATIVE: CASE EVENT DATE: 2020
